FAERS Safety Report 14937950 (Version 5)
Quarter: 2020Q2

REPORT INFORMATION
  Report Type: Spontaneous
  Country: CZ (occurrence: CZ)
  Receive Date: 20180525
  Receipt Date: 20200506
  Transmission Date: 20200713
  Serious: Yes (Hospitalization)
  Sender: FDA-Public Use
  Company Number: CZ-CELGENEUS-CZE-20180504823

PATIENT
  Age: 77 Year
  Sex: Female
  Weight: 65 kg

DRUGS (18)
  1. VENETOCLAX. [Concomitant]
     Active Substance: VENETOCLAX
     Dosage: 20 MILLIGRAM
     Route: 048
     Dates: start: 20180419, end: 20180419
  2. VEROSPIRON [Concomitant]
     Active Substance: SPIRONOLACTONE
     Indication: FLUID RETENTION
  3. ZOFRAN [Concomitant]
     Active Substance: ONDANSETRON HYDROCHLORIDE
     Indication: PROPHYLAXIS OF NAUSEA AND VOMITING
     Dosage: 4 MILLIGRAM
     Route: 048
     Dates: start: 20180418, end: 20180424
  4. NOXAFIL [Concomitant]
     Active Substance: POSACONAZOLE
     Indication: ANTIFUNGAL PROPHYLAXIS
     Dosage: 300 MILLIGRAM
     Route: 048
     Dates: start: 20180413, end: 20180517
  5. AZACITIDINE. [Suspect]
     Active Substance: AZACITIDINE
     Indication: ACUTE MYELOID LEUKAEMIA
     Dosage: 75 MILLIGRAM/SQ. METER
     Route: 058
     Dates: start: 20180418, end: 20180424
  6. ALLOPURINOL. [Concomitant]
     Active Substance: ALLOPURINOL
     Indication: PROPHYLAXIS
  7. VEROSPIRON [Concomitant]
     Active Substance: SPIRONOLACTONE
     Indication: OEDEMA PERIPHERAL
     Dosage: 25 MILLIGRAM
     Route: 048
     Dates: start: 20180413, end: 20180510
  8. ZINNAT [Concomitant]
     Active Substance: CEFUROXIME
     Indication: INFECTION PROPHYLAXIS
     Dosage: 1000 MILLIGRAM
     Route: 048
     Dates: start: 20180413, end: 20180510
  9. CONTROLOC [Concomitant]
     Active Substance: PANTOPRAZOLE SODIUM
     Indication: PROPHYLAXIS AGAINST GASTROINTESTINAL ULCER
     Dosage: 40 MILLIGRAM
     Route: 048
     Dates: start: 20180413
  10. FURON [Concomitant]
     Active Substance: FUROSEMIDE
     Indication: FLUID RETENTION
  11. VENETOCLAX. [Concomitant]
     Active Substance: VENETOCLAX
     Indication: ACUTE MYELOID LEUKAEMIA
     Dosage: 10 MILLIGRAM
     Route: 048
     Dates: start: 20180418, end: 20180418
  12. VENETOCLAX. [Concomitant]
     Active Substance: VENETOCLAX
     Dosage: 400 MILLIGRAM
     Route: 048
     Dates: start: 20180522
  13. VENETOCLAX. [Concomitant]
     Active Substance: VENETOCLAX
     Dosage: 50 MILLIGRAM
     Route: 048
     Dates: start: 20180420, end: 20180514
  14. FURON [Concomitant]
     Active Substance: FUROSEMIDE
     Indication: OEDEMA PERIPHERAL
     Dosage: 40 MILLIGRAM
     Route: 048
     Dates: start: 20180413, end: 20180510
  15. ZALDIAR [Concomitant]
     Active Substance: ACETAMINOPHEN\TRAMADOL HYDROCHLORIDE
     Indication: OSTEOARTHRITIS
     Dosage: 37.5/325 MG
     Route: 048
     Dates: start: 20180413
  16. AZACITIDINE. [Suspect]
     Active Substance: AZACITIDINE
     Dosage: 75 MILLIGRAM/SQ. METER
     Route: 058
     Dates: start: 20180522, end: 20180528
  17. ALLOPURINOL. [Concomitant]
     Active Substance: ALLOPURINOL
     Indication: TUMOUR LYSIS SYNDROME
     Route: 048
     Dates: start: 20180413, end: 20180422
  18. TRITACE [Concomitant]
     Active Substance: RAMIPRIL
     Indication: HYPERTENSION
     Dosage: 2.5 MILLIGRAM
     Route: 048
     Dates: start: 20180420

REACTIONS (1)
  - Hyponatraemia [Recovered/Resolved]

NARRATIVE: CASE EVENT DATE: 20180509
